FAERS Safety Report 15597935 (Version 2)
Quarter: 2018Q4

REPORT INFORMATION
  Report Type: Spontaneous
  Country: US (occurrence: US)
  Receive Date: 20181108
  Receipt Date: 20181115
  Transmission Date: 20190205
  Serious: Yes (Hospitalization)
  Sender: FDA-Public Use
  Company Number: US-FRESENIUS MEDICAL CARE RENAL THERAPIES GROUP-FMC-1811-001926

PATIENT
  Sex: Male
  Weight: 75 kg

DRUGS (1)
  1. DELFLEX WITH DEXTROSE 2.5% LOW MAGNESIUM LOW CALCIUM [Suspect]
     Active Substance: CALCIUM CHLORIDE\DEXTROSE\MAGNESIUM CHLORIDE\SODIUM CHLORIDE\SODIUM LACTATE
     Indication: END STAGE RENAL DISEASE
     Dosage: FOUR FILLS OF 2000 ML FOR A TOTAL TREATMENT VOLUME OF 8000 ML
     Route: 033

REACTIONS (4)
  - Back pain [Recovering/Resolving]
  - Fluid overload [Recovering/Resolving]
  - Treatment noncompliance [Recovering/Resolving]
  - Oedema peripheral [Recovering/Resolving]
